FAERS Safety Report 8099486-3 (Version None)
Quarter: 2012Q1

REPORT INFORMATION
  Report Type: 
  Country: None (occurrence: None)
  Receive Date: 20120126
  Receipt Date: 20120118
  Transmission Date: 20120608
  Serious: Yes (Other)
  Sender: FDA-Public Use
  Company Number: 1000027164

PATIENT
  Age: 85 Year
  Sex: Male

DRUGS (1)
  1. MEMANTINE HCL [Suspect]
     Indication: DEMENTIA ALZHEIMER'S TYPE
     Dosage: 20 MG (20 MG, 1 IN 1 D)
     Dates: start: 20111023

REACTIONS (2)
  - HALLUCINATION [None]
  - PSYCHOMOTOR HYPERACTIVITY [None]
